FAERS Safety Report 8606828 (Version 4)
Quarter: 2014Q1

REPORT INFORMATION
  Report Type: Spontaneous
  Country: US (occurrence: US)
  Receive Date: 20120611
  Receipt Date: 20140127
  Transmission Date: 20141002
  Serious: Yes (Hospitalization, Other)
  Sender: FDA-Public Use
  Company Number: US-ASTRAZENECA-2012SE34698

PATIENT
  Age: 42 Year
  Sex: Female

DRUGS (24)
  1. NEXIUM [Suspect]
     Indication: GASTROOESOPHAGEAL REFLUX DISEASE
     Route: 048
     Dates: start: 19960101
  2. NEXIUM [Suspect]
     Indication: GASTROOESOPHAGEAL REFLUX DISEASE
     Dosage: TAKEN ONE OR TWO TIMES DAILY
     Route: 048
     Dates: start: 2001, end: 2011
  3. NEXIUM [Suspect]
     Indication: GASTROOESOPHAGEAL REFLUX DISEASE
     Route: 048
     Dates: start: 20100113
  4. NEXIUM [Suspect]
     Indication: GASTROOESOPHAGEAL REFLUX DISEASE
     Route: 048
     Dates: start: 20100210
  5. PROTONIX [Concomitant]
  6. PROTONIX [Concomitant]
     Route: 048
     Dates: start: 20120504
  7. PREVACID [Concomitant]
  8. ZANTAC [Concomitant]
  9. PEPCID [Concomitant]
  10. TUMS [Concomitant]
  11. ALKA-SELTZER [Concomitant]
  12. ROLAIDS [Concomitant]
  13. MYLANTA [Concomitant]
  14. VITAMIN A [Concomitant]
  15. MAGNESIUM [Concomitant]
  16. HYDROCHLOROTHIAZIDE [Concomitant]
     Route: 048
     Dates: start: 20100113
  17. TOPIRAMATE [Concomitant]
     Dates: start: 20100210
  18. FLUCONAZOLE [Concomitant]
     Dates: start: 20100325
  19. TRAMADOL [Concomitant]
     Route: 048
     Dates: start: 20100113
  20. INDOCET [Concomitant]
     Dates: start: 20110816
  21. VITAMIN D [Concomitant]
     Dates: start: 20110816
  22. CALCIUM [Concomitant]
     Dates: start: 20110816
  23. PREDNISONE [Concomitant]
     Route: 048
     Dates: start: 20110822
  24. CYMBALTA [Concomitant]

REACTIONS (20)
  - Intervertebral disc degeneration [Unknown]
  - Cervical radiculopathy [Unknown]
  - Cervical spinal stenosis [Unknown]
  - Intervertebral disc protrusion [Unknown]
  - Breast cancer female [Unknown]
  - Barrett^s oesophagus [Unknown]
  - Uterine disorder [Unknown]
  - Systemic lupus erythematosus [Unknown]
  - Osteoporosis [Unknown]
  - Multiple fractures [Unknown]
  - Rheumatoid arthritis [Unknown]
  - Osteoarthritis [Unknown]
  - Hand fracture [Unknown]
  - Back pain [Unknown]
  - Spinal osteoarthritis [Unknown]
  - Bone disorder [Unknown]
  - Arthritis [Unknown]
  - Vitamin D deficiency [Unknown]
  - Calcium deficiency [Unknown]
  - Arthralgia [Unknown]
